FAERS Safety Report 20651370 (Version 1)
Quarter: 2022Q1

REPORT INFORMATION
  Report Type: Report from Study
  Country: ES (occurrence: ES)
  Receive Date: 20220330
  Receipt Date: 20220330
  Transmission Date: 20220423
  Serious: Yes (Other)
  Sender: FDA-Public Use
  Company Number: ES-SUN PHARMACEUTICAL INDUSTRIES LTD-2022RR-331057

PATIENT
  Age: 92 Year
  Sex: Female

DRUGS (18)
  1. SONIDEGIB [Suspect]
     Active Substance: SONIDEGIB
     Indication: Basal cell carcinoma
     Dosage: 200 MILLIGRAM, DAILY
     Route: 048
     Dates: start: 20210219, end: 20211008
  2. OMEPRAZOLE [Concomitant]
     Active Substance: OMEPRAZOLE
     Indication: Prophylaxis
     Dosage: 20 MILLIGRAM, DAILY
     Route: 048
  3. HYDROCHLOROTHIAZIDE [Concomitant]
     Active Substance: HYDROCHLOROTHIAZIDE
     Indication: Pre-existing disease
     Dosage: 25 MILLIGRAM, DAILY
     Route: 048
  4. VALSARTAN [Concomitant]
     Active Substance: VALSARTAN
     Indication: Pre-existing disease
     Dosage: 320 MILLIGRAM, DAILY
     Route: 048
  5. DIGOXIN [Concomitant]
     Active Substance: DIGOXIN
     Indication: Pre-existing disease
     Dosage: 0.625 MILLIGRAM, WEEKLY
     Route: 048
     Dates: start: 20151202
  6. INSULIN GLARGINE [Concomitant]
     Active Substance: INSULIN GLARGINE
     Indication: Pre-existing disease
     Dosage: 40 INTERNATIONAL UNIT, DAILY
     Route: 058
     Dates: start: 20200504
  7. URSODIOL [Concomitant]
     Active Substance: URSODIOL
     Indication: Pre-existing disease
     Dosage: 300 MILLIGRAM, TID
     Route: 048
     Dates: start: 20200506
  8. FUROSEMIDE [Concomitant]
     Active Substance: FUROSEMIDE
     Indication: Pre-existing disease
     Dosage: 40 MILLIGRAM, DAILY
     Route: 048
     Dates: start: 20200207
  9. DIAZEPAM [Concomitant]
     Active Substance: DIAZEPAM
     Indication: Pre-existing disease
     Dosage: 2.5 MILLIGRAM, DAILY
     Route: 048
     Dates: start: 20210111
  10. CALCIUM CARBONATE [Concomitant]
     Active Substance: CALCIUM CARBONATE
     Indication: Pre-existing disease
     Dosage: 1500 MILLIGRAM, DAILY
     Route: 048
     Dates: start: 20190221
  11. CHOLECALCIFEROL [Concomitant]
     Active Substance: CHOLECALCIFEROL
     Indication: Pre-existing disease
     Dosage: 400 INTERNATIONAL UNIT, DAILY
     Route: 048
     Dates: start: 20190221
  12. WARFARIN [Concomitant]
     Active Substance: WARFARIN
     Indication: Pre-existing disease
     Dosage: 12 MILLIGRAM, WEEKLY
     Route: 048
     Dates: start: 20170623
  13. REPAGLINED [Concomitant]
     Indication: Pre-existing disease
     Dosage: 0.5 MILLIGRAM, TID
     Route: 048
     Dates: start: 20200824
  14. ACETAMINOPHEN [Concomitant]
     Active Substance: ACETAMINOPHEN
     Indication: Pre-existing disease
     Dosage: 650 MILLIGRAM
     Route: 048
     Dates: start: 20160329
  15. TRAMADOL [Concomitant]
     Active Substance: TRAMADOL
     Indication: Pre-existing disease
     Dosage: 75 MILLIGRAM
     Route: 048
     Dates: start: 20160329
  16. AMLODIPINE [Concomitant]
     Active Substance: AMLODIPINE BESYLATE
     Indication: Pre-existing disease
     Dosage: 5 MILLIGRAM, DAILY
     Route: 048
     Dates: start: 20181129
  17. NOVORAPID [Concomitant]
     Active Substance: INSULIN ASPART
     Indication: Pre-existing disease
     Dosage: DOSE AS REQUIRED TID
     Route: 058
     Dates: start: 20210602
  18. INSULIN GLARGINE [Concomitant]
     Active Substance: INSULIN GLARGINE
     Indication: Pre-existing disease
     Dosage: 40 INTERNATIONAL UNIT, TID
     Route: 058
     Dates: start: 20210602

REACTIONS (1)
  - Urinary tract infection [Recovered/Resolved]

NARRATIVE: CASE EVENT DATE: 20211008
